FAERS Safety Report 9979385 (Version 2)
Quarter: 2014Q1

REPORT INFORMATION
  Report Type: Report from Study
  Country: PR (occurrence: PR)
  Receive Date: 20140306
  Receipt Date: 20140306
  Transmission Date: 20141002
  Serious: Yes (Other)
  Sender: FDA-Public Use
  Company Number: PR-ABBVIE-13P-131-1158540-00

PATIENT
  Sex: Male
  Weight: 115.77 kg

DRUGS (9)
  1. HUMIRA [Suspect]
     Indication: RHEUMATOID ARTHRITIS
     Route: 058
     Dates: end: 20131025
  2. KENALOG [Concomitant]
     Indication: PAIN
     Route: 030
  3. PANADOL [Concomitant]
     Indication: PAIN
     Route: 048
  4. DIOVAN [Concomitant]
     Indication: HYPERTENSION
     Route: 048
  5. NORVASC [Concomitant]
     Indication: HYPERTENSION
     Route: 048
  6. CARDURA [Concomitant]
     Indication: HYPERTENSION
     Route: 048
  7. KLONOPIN [Concomitant]
     Indication: ANXIETY
     Route: 048
  8. RESTORIL [Concomitant]
     Indication: DEPRESSION
     Route: 048
  9. SYNTHROID [Concomitant]
     Indication: THYROID DISORDER
     Route: 048

REACTIONS (5)
  - Renal impairment [Unknown]
  - Intervertebral disc protrusion [Unknown]
  - Nasopharyngitis [Recovered/Resolved]
  - Renal impairment [Unknown]
  - Intervertebral disc protrusion [Unknown]
